FAERS Safety Report 6428224-2 (Version None)
Quarter: 2009Q4

REPORT INFORMATION
  Report Type: 
  Country: None (occurrence: None)
  Receive Date: 20091028
  Receipt Date: 20091015
  Transmission Date: 20100525
  Serious: Yes (Hospitalization)
  Sender: FDA-Public Use
  Company Number: THYM-1001247

PATIENT

DRUGS (5)
  1. THYMOGLOBULIN [Suspect]
     Indication: RENAL TRANSPLANT
     Dosage: INTRAVENOUS
     Route: 042
  2. ATG-FRESENIUS (ANTITHYMOCYTE IMMUNOGLOBULIN) [Suspect]
     Indication: RENAL TRANSPLANT
  3. TACROLIMUS [Concomitant]
  4. CELLCEPT [Concomitant]
  5. SOLU-DECORTIN H (PREDNISOLONE) [Concomitant]

REACTIONS (1)
  - KIDNEY TRANSPLANT REJECTION [None]
